FAERS Safety Report 20574566 (Version 3)
Quarter: 2022Q3

REPORT INFORMATION
  Report Type: Report from Study
  Country: CA (occurrence: CA)
  Receive Date: 20220309
  Receipt Date: 20220909
  Transmission Date: 20221027
  Serious: Yes (Other)
  Sender: FDA-Public Use
  Company Number: CA-ABBVIE-22K-028-4307678-00

PATIENT
  Age: 60 Year
  Sex: Male

DRUGS (2)
  1. HUMIRA [Suspect]
     Active Substance: ADALIMUMAB
     Indication: Colitis ulcerative
     Route: 058
     Dates: start: 20210113
  2. HUMIRA [Suspect]
     Active Substance: ADALIMUMAB
     Route: 058

REACTIONS (6)
  - Retinal detachment [Recovering/Resolving]
  - Eye disorder [Unknown]
  - Drug level abnormal [Unknown]
  - Lacrimation increased [Unknown]
  - Adverse food reaction [Unknown]
  - Food allergy [Not Recovered/Not Resolved]

NARRATIVE: CASE EVENT DATE: 20220201
